FAERS Safety Report 4513360-8 (Version None)
Quarter: 2004Q4

REPORT INFORMATION
  Report Type: 
  Country: None (occurrence: None)
  Receive Date: 20041124
  Receipt Date: 20041109
  Transmission Date: 20050328
  Serious: Yes (Hospitalization)
  Sender: FDA-Public Use
  Company Number: A01200405678

PATIENT
  Age: 57 Year
  Sex: Female

DRUGS (6)
  1. ELOXATIN [Suspect]
     Indication: COLON CANCER METASTATIC
     Dosage: 200 MG Q3W
     Route: 042
     Dates: start: 20040924, end: 20040924
  2. ELOXATIN [Suspect]
     Indication: METASTASES TO LIVER
     Dosage: 200 MG Q3W
     Route: 042
     Dates: start: 20040924, end: 20040924
  3. XELODA [Suspect]
     Indication: COLON CANCER METASTATIC
     Dosage: 1500 MG BID
     Route: 048
     Dates: start: 20040924, end: 20041008
  4. XELODA [Suspect]
     Indication: METASTASES TO LIVER
     Dosage: 1500 MG BID
     Route: 048
     Dates: start: 20040924, end: 20041008
  5. PYRIDOXINE HYDROCHLORIDE [Concomitant]
  6. DAGRAVIT TOTAAL (MULTIVITAMINS) [Concomitant]

REACTIONS (5)
  - DIABETES MELLITUS [None]
  - DIARRHOEA [None]
  - DIHYDROPYRIMIDINE DEHYDROGENASE DEFICIENCY [None]
  - FATIGUE [None]
  - WEIGHT DECREASED [None]
